FAERS Safety Report 9195013 (Version 1)
Quarter: 2013Q1

REPORT INFORMATION
  Report Type: Spontaneous
  Country: US (occurrence: US)
  Receive Date: 20130328
  Receipt Date: 20130328
  Transmission Date: 20140127
  Serious: No
  Sender: FDA-Public Use
  Company Number: US-ALLERGAN-1213938US

PATIENT
  Age: 67 Year
  Sex: Female

DRUGS (9)
  1. LATISSE 0.03% [Suspect]
     Indication: PRODUCT USED FOR UNKNOWN INDICATION
     Dosage: 2 GTT, UNK
     Route: 061
     Dates: start: 2009
  2. NASONEX [Concomitant]
     Indication: HYPERSENSITIVITY
     Dosage: UNK UNK, PRN
     Route: 045
  3. AZELASTINE [Concomitant]
     Indication: HYPERSENSITIVITY
     Dosage: UNK UNK, PRN
     Route: 045
  4. CLARITIN                           /00413701/ [Concomitant]
     Indication: HYPERSENSITIVITY
     Dosage: UNK UNK, PRN
     Route: 048
  5. BENADRYL                           /00000402/ [Concomitant]
     Indication: HYPERSENSITIVITY
     Dosage: UNK UNK, PRN
     Route: 048
  6. ZYRTEC                             /00884302/ [Concomitant]
     Indication: HYPERSENSITIVITY
     Dosage: UNK
     Route: 048
  7. DIOVAN                             /01319601/ [Concomitant]
     Indication: BLOOD PRESSURE
  8. DYAZIDE [Concomitant]
     Indication: BLOOD PRESSURE
  9. ZADITOR                            /00495201/ [Concomitant]
     Indication: HYPERSENSITIVITY
     Route: 047

REACTIONS (7)
  - Vitreous detachment [Unknown]
  - Vitreous floaters [Recovering/Resolving]
  - Photopsia [Recovering/Resolving]
  - Eye disorder [Recovering/Resolving]
  - Wrong technique in drug usage process [Unknown]
  - Wrong technique in drug usage process [Unknown]
  - Vision blurred [Not Recovered/Not Resolved]
